FAERS Safety Report 12902535 (Version 3)
Quarter: 2016Q4

REPORT INFORMATION
  Report Type: Spontaneous
  Country: JP (occurrence: JP)
  Receive Date: 20161102
  Receipt Date: 20161202
  Transmission Date: 20170207
  Serious: Yes (Other)
  Sender: FDA-Public Use
  Company Number: JP-VIIV HEALTHCARE LIMITED-JP2016JPN160051

PATIENT
  Age: 43 Year
  Sex: Male

DRUGS (2)
  1. TRUVADA [Concomitant]
     Active Substance: EMTRICITABINE\TENOFOVIR DISOPROXIL FUMARATE
     Indication: HIV INFECTION
     Dosage: 1 DF, QD
     Route: 048
  2. TIVICAY [Suspect]
     Active Substance: DOLUTEGRAVIR SODIUM
     Indication: HIV INFECTION
     Dosage: 50 MG, BID
     Route: 048
     Dates: start: 201511, end: 201608

REACTIONS (3)
  - Blood HIV RNA increased [Unknown]
  - CD4 lymphocytes decreased [Unknown]
  - Drug resistance [Unknown]
